FAERS Safety Report 13347555 (Version 2)
Quarter: 2017Q2

REPORT INFORMATION
  Report Type: Spontaneous
  Country: GB (occurrence: GB)
  Receive Date: 20170317
  Receipt Date: 20170630
  Transmission Date: 20170830
  Serious: Yes (Hospitalization, Other)
  Sender: FDA-Public Use
  Company Number: GB-MYLANLABS-2017M1016278

PATIENT

DRUGS (2)
  1. CLOPIDOGREL [Suspect]
     Active Substance: CLOPIDOGREL BISULFATE
     Dosage: UNK
     Route: 065
  2. ALFAD [Suspect]
     Active Substance: ALFACALCIDOL
     Dosage: 1 ?G, UNK
     Route: 065

REACTIONS (8)
  - Vertigo [Unknown]
  - Pruritus [Unknown]
  - Nail discolouration [Unknown]
  - Underweight [Unknown]
  - Drug prescribing error [Unknown]
  - Pollakiuria [Unknown]
  - Skin exfoliation [Unknown]
  - Circulatory collapse [Recovered/Resolved]
